FAERS Safety Report 5403984-8 (Version None)
Quarter: 2007Q3

REPORT INFORMATION
  Report Type: 
  Country: None (occurrence: None)
  Receive Date: 20070802
  Receipt Date: 20070727
  Transmission Date: 20080115
  Serious: Yes (Hospitalization)
  Sender: FDA-Public Use
  Company Number: B0478076A

PATIENT
  Age: 87 Year
  Sex: Female
  Weight: 43 kg

DRUGS (10)
  1. VALTREX [Suspect]
     Indication: FACIAL PALSY
     Dosage: 500MG PER DAY
     Route: 048
     Dates: start: 20070630, end: 20070701
  2. THYRADIN [Concomitant]
     Indication: HYPOTHYROIDISM
     Dosage: 25MG PER DAY
     Route: 048
     Dates: start: 20070127
  3. ENALAPRIL MALEATE [Concomitant]
     Indication: HYPERTENSION
     Dosage: 5MG PER DAY
     Route: 048
     Dates: start: 20060701
  4. OLMESARTAN MEDOXOMIL [Concomitant]
     Indication: HYPERTENSION
     Dosage: 20MG PER DAY
     Route: 048
     Dates: end: 20060701
  5. ATELEC [Concomitant]
     Indication: HYPERTENSION
     Route: 048
     Dates: start: 20060701
  6. NITRAZEPAM [Concomitant]
     Indication: INSOMNIA
     Dosage: 2.5MG PER DAY
     Route: 048
     Dates: start: 20060701, end: 20070704
  7. METHYCOBAL [Concomitant]
     Route: 048
     Dates: start: 20060101
  8. SELBEX [Concomitant]
     Indication: GASTRITIS
     Dosage: 150MG PER DAY
     Route: 048
     Dates: start: 20060701, end: 20060703
  9. ALFAROL [Concomitant]
     Dosage: .25MG PER DAY
     Route: 048
     Dates: start: 20061201, end: 20070601
  10. HEMODIALYSIS [Concomitant]

REACTIONS (26)
  - ALBUMIN GLOBULIN RATIO DECREASED [None]
  - BASOPHIL COUNT INCREASED [None]
  - BLOOD ALBUMIN DECREASED [None]
  - BLOOD ALKALINE PHOSPHATASE INCREASED [None]
  - BLOOD CALCIUM INCREASED [None]
  - BLOOD CHOLINESTERASE DECREASED [None]
  - BLOOD CREATININE INCREASED [None]
  - BLOOD LACTATE DEHYDROGENASE INCREASED [None]
  - BLOOD PHOSPHORUS [None]
  - BLOOD SODIUM DECREASED [None]
  - BLOOD TRIGLYCERIDES INCREASED [None]
  - C-REACTIVE PROTEIN INCREASED [None]
  - COORDINATION ABNORMAL [None]
  - CREATINE PHOSPHOKINASE DECREASED [None]
  - DEPRESSED LEVEL OF CONSCIOUSNESS [None]
  - FIBRIN D DIMER INCREASED [None]
  - FIBRIN DEGRADATION PRODUCTS [None]
  - GAMMA-GLUTAMYLTRANSFERASE [None]
  - LYMPHOPENIA [None]
  - MONOCYTE COUNT INCREASED [None]
  - NEUTROPHIL COUNT INCREASED [None]
  - PROTEIN TOTAL [None]
  - RED BLOOD CELL COUNT DECREASED [None]
  - RETICULOCYTE COUNT INCREASED [None]
  - SPEECH DISORDER [None]
  - URINE NITROGEN [None]
